FAERS Safety Report 4303154-0 (Version None)
Quarter: 2004Q1

REPORT INFORMATION
  Report Type: 
  Country: None (occurrence: None)
  Receive Date: 20040223
  Receipt Date: 20031220
  Transmission Date: 20041129
  Serious: Yes (Hospitalization, Other)
  Sender: FDA-Public Use
  Company Number: KII-2003-0007335

PATIENT
  Age: 28 Year
  Sex: Male

DRUGS (4)
  1. OXYCONTIN [Suspect]
  2. METHADONE HCL [Suspect]
  3. BENZODIAZEPINES DERIVATIVES () [Suspect]
  4. COCAINE (COCAINE) [Suspect]

REACTIONS (11)
  - BODY TEMPERATURE INCREASED [None]
  - CHILLS [None]
  - COMA [None]
  - GLUCOSE URINE PRESENT [None]
  - HYPOTENSION [None]
  - INCONTINENCE [None]
  - MULTIPLE DRUG OVERDOSE [None]
  - OXYGEN SATURATION DECREASED [None]
  - RESPIRATORY RATE INCREASED [None]
  - SINUS TACHYCARDIA [None]
  - WHITE BLOOD CELL COUNT INCREASED [None]
